FAERS Safety Report 6268985-9 (Version None)
Quarter: 2009Q3

REPORT INFORMATION
  Report Type: 
  Country: None (occurrence: None)
  Receive Date: 20090715
  Receipt Date: 20090708
  Transmission Date: 20100115
  Serious: Yes (Hospitalization, Other)
  Sender: FDA-Public Use
  Company Number: US-JNJCH-2009017976

PATIENT
  Age: 71 Year
  Sex: Female

DRUGS (7)
  1. BENADRYL [Suspect]
     Indication: HYPERSENSITIVITY
     Dosage: TEXT:50MG EVERY FIVE HOURS FOR 48HOURS
     Route: 042
     Dates: start: 20090306, end: 20090308
  2. AMITIZA [Suspect]
     Indication: CONSTIPATION
     Dosage: TEXT:UNSPECIFIED
     Route: 065
  3. LAMICTAL [Concomitant]
     Indication: ANTIDEPRESSANT THERAPY
     Dosage: TEXT:UNSPECIFIED
     Route: 065
  4. CARTIA XT [Concomitant]
     Indication: HYPERTENSION
     Dosage: TEXT:1 PER DAY
     Route: 065
  5. SYNTHROID [Concomitant]
     Indication: THYROID DISORDER
     Dosage: TEXT:1 PER DAY
     Route: 065
  6. ACETYLSALICYLIC ACID SRT [Concomitant]
     Indication: CARDIAC DISORDER
     Dosage: TEXT:1 PER DAY
     Route: 065
  7. LIBRIUM [Concomitant]
     Indication: ANXIETY
     Dosage: TEXT:2 PER DAY
     Route: 065

REACTIONS (7)
  - AMNESIA [None]
  - OVERDOSE [None]
  - PAIN [None]
  - PRURITUS [None]
  - PSYCHOTIC DISORDER [None]
  - SENSORY DISTURBANCE [None]
  - SWELLING [None]
